FAERS Safety Report 6036367-0 (Version None)
Quarter: 2009Q1

REPORT INFORMATION
  Report Type: 
  Country: None (occurrence: None)
  Receive Date: 20090113
  Receipt Date: 20090105
  Transmission Date: 20090719
  Serious: Yes (Death, Hospitalization)
  Sender: FDA-Public Use
  Company Number: IT-MERCK-0901USA00297

PATIENT
  Age: 56 Year
  Sex: Male

DRUGS (5)
  1. DECADRON [Suspect]
     Indication: PROSTATE CANCER
     Route: 048
  2. ZOLEDRONIC ACID [Concomitant]
     Indication: CHEMOTHERAPY
     Route: 065
  3. EPOETIN [Concomitant]
     Route: 065
  4. MORPHINE [Concomitant]
     Route: 048
  5. THALIDOMIDE [Suspect]
     Indication: PALLIATIVE CARE
     Route: 048

REACTIONS (1)
  - DISSEMINATED INTRAVASCULAR COAGULATION [None]
